FAERS Safety Report 4650026-8 (Version None)
Quarter: 2005Q2

REPORT INFORMATION
  Report Type: 
  Country: None (occurrence: None)
  Receive Date: 20050502
  Receipt Date: 20050422
  Transmission Date: 20051028
  Serious: Yes (Other)
  Sender: FDA-Public Use
  Company Number: US-JNJFOC-20050406497

PATIENT
  Age: 11 Year
  Sex: Male
  Weight: 61.24 kg

DRUGS (2)
  1. CONCERTA [Suspect]
     Route: 049
  2. RITALIN IR [Concomitant]
     Route: 049

REACTIONS (2)
  - TIC [None]
  - WEIGHT DECREASED [None]
